FAERS Safety Report 4315767-0 (Version None)
Quarter: 2004Q1

REPORT INFORMATION
  Report Type: 
  Country: None (occurrence: None)
  Receive Date: 20040309
  Receipt Date: 20040223
  Transmission Date: 20041129
  Serious: Yes (Hospitalization, Other)
  Sender: FDA-Public Use
  Company Number: USA030434778

PATIENT
  Age: 67 Year
  Sex: Female
  Weight: 59 kg

DRUGS (5)
  1. FORTEO [Suspect]
     Indication: SPINAL COMPRESSION FRACTURE
     Dosage: 20 UG/DAY
     Dates: start: 20030401
  2. ALKERAN [Concomitant]
  3. CALCITRIOL [Concomitant]
  4. PREDNISONE [Concomitant]
  5. RYTHMOL [Concomitant]

REACTIONS (10)
  - BLADDER PROLAPSE [None]
  - FATIGUE [None]
  - FEELING ABNORMAL [None]
  - INJECTION SITE ERYTHEMA [None]
  - KERATOCONJUNCTIVITIS SICCA [None]
  - NAUSEA [None]
  - PARAESTHESIA [None]
  - PHARMACEUTICAL PRODUCT COMPLAINT [None]
  - RETINAL DETACHMENT [None]
  - URINARY INCONTINENCE [None]
